FAERS Safety Report 12270211 (Version 2)
Quarter: 2016Q2

REPORT INFORMATION
  Report Type: Report from Study
  Country: US (occurrence: US)
  Receive Date: 20160415
  Receipt Date: 20160623
  Transmission Date: 20160815
  Serious: No
  Sender: FDA-Public Use
  Company Number: PHEH2016US009302

PATIENT
  Age: 42 Year
  Sex: Female

DRUGS (1)
  1. GILENYA [Suspect]
     Active Substance: FINGOLIMOD HYDROCHLORIDE
     Indication: MULTIPLE SCLEROSIS
     Dosage: 0.5 MG, QD
     Route: 048
     Dates: start: 20141030

REACTIONS (10)
  - Atrial septal defect [Unknown]
  - Cerebral disorder [Recovered/Resolved]
  - Headache [Unknown]
  - Full blood count abnormal [Unknown]
  - Aphasia [Recovered/Resolved]
  - Metabolic function test abnormal [Unknown]
  - Disorganised speech [Recovered/Resolved]
  - Muscle tightness [Unknown]
  - Vomiting [Unknown]
  - Visual field defect [Unknown]

NARRATIVE: CASE EVENT DATE: 20160413
